FAERS Safety Report 24314214 (Version 1)
Quarter: 2024Q3

REPORT INFORMATION
  Report Type: Spontaneous
  Country: NO (occurrence: NO)
  Receive Date: 20240912
  Receipt Date: 20240912
  Transmission Date: 20241017
  Serious: Yes (Other)
  Sender: ASCEND
  Company Number: NO-Ascend Therapeutics US, LLC-2161530

PATIENT
  Age: 53 Year
  Sex: Female

DRUGS (2)
  1. ESTROGEL [Suspect]
     Active Substance: ESTRADIOL
     Indication: Menopause
     Route: 003
     Dates: start: 20240808, end: 20240816
  2. ESTROGEL [Suspect]
     Active Substance: ESTRADIOL
     Route: 003
     Dates: start: 20240808, end: 20240816

REACTIONS (4)
  - Crohn^s disease [Recovering/Resolving]
  - Drug ineffective [Recovering/Resolving]
  - Menopausal symptoms [Recovering/Resolving]
  - Concomitant disease aggravated [Recovering/Resolving]

NARRATIVE: CASE EVENT DATE: 20240808
